FAERS Safety Report 9913931 (Version 1)
Quarter: 2014Q1

REPORT INFORMATION
  Report Type: Spontaneous
  Country: US (occurrence: None)
  Receive Date: 20140219
  Receipt Date: 20140219
  Transmission Date: 20141002
  Serious: Yes (Other)
  Sender: FDA-Public Use
  Company Number: None

PATIENT
  Age: 24 Year
  Sex: Female
  Weight: 75.75 kg

DRUGS (1)
  1. MIRENA [Suspect]

REACTIONS (6)
  - Gastroenteritis viral [None]
  - Dehydration [None]
  - Abdominal discomfort [None]
  - Muscle strain [None]
  - Device dislocation [None]
  - Medical device complication [None]
